FAERS Safety Report 23140624 (Version 1)
Quarter: 2023Q4

REPORT INFORMATION
  Report Type: Spontaneous
  Country: CN (occurrence: CN)
  Receive Date: 20231103
  Receipt Date: 20231103
  Transmission Date: 20240110
  Serious: Yes (Hospitalization)
  Sender: FDA-Public Use
  Company Number: CN-ABBVIE-5478218

PATIENT
  Age: 46 Year
  Sex: Female
  Weight: 53 kg

DRUGS (2)
  1. RINVOQ [Suspect]
     Active Substance: UPADACITINIB
     Indication: Pemphigoid
     Route: 048
     Dates: start: 20230926, end: 20231007
  2. RINVOQ [Suspect]
     Active Substance: UPADACITINIB
     Indication: Pemphigoid
     Route: 048
     Dates: start: 202310

REACTIONS (2)
  - Drug eruption [Recovering/Resolving]
  - Peripheral swelling [Unknown]

NARRATIVE: CASE EVENT DATE: 20231002
